FAERS Safety Report 20291486 (Version 1)
Quarter: 2022Q1

REPORT INFORMATION
  Report Type: Spontaneous
  Country: US (occurrence: None)
  Receive Date: 20220104
  Receipt Date: 20220104
  Transmission Date: 20220423
  Serious: Yes (Other)
  Sender: FDA-Public Use
  Company Number: None

PATIENT
  Age: 32 Year
  Sex: Female
  Weight: 100 kg

DRUGS (1)
  1. CASIRIVIMAB\IMDEVIMAB [Suspect]
     Active Substance: CASIRIVIMAB\IMDEVIMAB
     Indication: COVID-19
     Dosage: 1200MG ONCE IV PIQQYBACK?
     Route: 042
     Dates: start: 20211109

REACTIONS (2)
  - Chest discomfort [None]
  - Paraesthesia oral [None]

NARRATIVE: CASE EVENT DATE: 20211109
